FAERS Safety Report 10037897 (Version 1)
Quarter: 2014Q1

REPORT INFORMATION
  Report Type: Spontaneous
  Country: MX (occurrence: MX)
  Receive Date: 20140326
  Receipt Date: 20140326
  Transmission Date: 20141002
  Serious: Yes (Other)
  Sender: FDA-Public Use
  Company Number: MX-BAYER-2014-043125

PATIENT
  Sex: Male

DRUGS (1)
  1. NEXAVAR [Suspect]
     Indication: RENAL CANCER
     Dosage: TWO TABLETS, DAILY
     Route: 048

REACTIONS (4)
  - Neoplasm progression [Unknown]
  - Neovascularisation [Unknown]
  - Generalised oedema [Unknown]
  - Generalised erythema [Unknown]
